FAERS Safety Report 8710396 (Version 2)
Quarter: 2012Q4

REPORT INFORMATION
  Report Type: 
  Country: JP (occurrence: JP)
  Receive Date: 20120807
  Receipt Date: 20121211
  Transmission Date: 20130627
  Serious: Yes (Hospitalization)
  Sender: FDA-Public Use
  Company Number: JP-009507513-2012SP020577

PATIENT
  Age: 64 Year
  Sex: Female
  Weight: 40 kg

DRUGS (22)
  1. PEGINTRON [Suspect]
     Indication: CHRONIC HEPATITIS C
     Dosage: 60 Microgram, qw
     Route: 058
     Dates: start: 20120118, end: 20120329
  2. PEGINTRON [Suspect]
     Dosage: 1.29 Microgram per kilogram, qw
     Route: 058
     Dates: start: 20120502
  3. REBETOL [Suspect]
     Indication: CHRONIC HEPATITIS C
     Dosage: 200 mg, bid
     Route: 048
     Dates: start: 20120118, end: 20120201
  4. REBETOL [Suspect]
     Dosage: 200 mg, qd
     Route: 048
     Dates: start: 20120202, end: 20120322
  5. REBETOL [Suspect]
     Dosage: 200 mg, qd
     Route: 048
     Dates: start: 20120502
  6. TELAVIC [Suspect]
     Indication: CHRONIC HEPATITIS C
     Dosage: 750 mg, bid
     Route: 048
     Dates: start: 20120118, end: 20120315
  7. TAKEPRON [Concomitant]
     Indication: OESOPHAGITIS
     Dosage: 15 mg, qd
     Route: 048
  8. MECOBALAMIN [Concomitant]
     Indication: NEUROPATHY PERIPHERAL
     Dosage: 1500 Microgram, qd
     Route: 048
  9. MAGMITT [Concomitant]
     Indication: PROPHYLAXIS
     Dosage: 500 mg, qd
     Route: 048
  10. MAGMITT [Concomitant]
     Dosage: 500 mg, Once
     Route: 048
  11. ACTONEL [Concomitant]
     Indication: OSTEOPOROSIS
     Dosage: 17.5 mg, On fridays
     Route: 048
  12. ACTONEL [Concomitant]
     Dosage: 17.5 mg, on Fridays
     Route: 048
  13. ANTEBATE [Concomitant]
     Dosage: UNK
     Route: 061
  14. MOHRUS [Concomitant]
     Dosage: UNK
     Route: 061
  15. TALION (BEPOTASTINE BESYLATE) [Concomitant]
     Dosage: UNK
     Route: 048
  16. [COMPOSITION UNSPECIFIED] [Concomitant]
     Dosage: 15 mg, qd
     Dates: start: 20120121
  17. [COMPOSITION UNSPECIFIED] [Concomitant]
     Dosage: 10 mg, qd
     Dates: start: 20120128
  18. [COMPOSITION UNSPECIFIED] [Concomitant]
     Dosage: 5 mg, qd
     Dates: start: 20120131
  19. [COMPOSITION UNSPECIFIED] [Concomitant]
     Dosage: 10 mg, qd
     Dates: start: 20120204
  20. [COMPOSITION UNSPECIFIED] [Concomitant]
     Dosage: 5 mg, qd
     Dates: start: 20120211
  21. SOLDEM 3A [Concomitant]
     Indication: DEHYDRATION
     Dosage: 500 ml/ day, prn
     Route: 042
     Dates: start: 20120301, end: 20120426
  22. [COMPOSITION UNSPECIFIED] [Concomitant]

REACTIONS (3)
  - Anaemia [Recovered/Resolved]
  - Haemoglobin decreased [Recovered/Resolved]
  - Drug eruption [None]
